FAERS Safety Report 8250622-5 (Version None)
Quarter: 2012Q2

REPORT INFORMATION
  Report Type: 
  Country: None (occurrence: None)
  Receive Date: 20120402
  Receipt Date: 20120329
  Transmission Date: 20120825
  Serious: Yes (Hospitalization)
  Sender: FDA-Public Use
  Company Number: FR-ROCHE-1054653

PATIENT
  Sex: Female

DRUGS (1)
  1. TAMIFLU [Suspect]
     Indication: INFLUENZA
     Route: 048
     Dates: start: 20120306, end: 20120309

REACTIONS (4)
  - VOMITING [None]
  - SUBILEUS [None]
  - ABDOMINAL PAIN [None]
  - CYTOLYTIC HEPATITIS [None]
